FAERS Safety Report 7780316-1 (Version None)
Quarter: 2011Q3

REPORT INFORMATION
  Report Type: 
  Country: None (occurrence: None)
  Receive Date: 20110927
  Receipt Date: 20110920
  Transmission Date: 20111222
  Serious: Yes (Hospitalization, Other)
  Sender: FDA-Public Use
  Company Number: US-BAXTER-2011BH029598

PATIENT
  Age: 15 Year
  Sex: Male
  Weight: 46 kg

DRUGS (2)
  1. CEFEPIME [Suspect]
     Indication: CHRONIC SINUSITIS
     Route: 042
  2. GENTAMICIN [Suspect]
     Indication: CHRONIC SINUSITIS
     Route: 042

REACTIONS (2)
  - ENCEPHALOPATHY [None]
  - RENAL FAILURE ACUTE [None]
